FAERS Safety Report 17901514 (Version 2)
Quarter: 2020Q3

REPORT INFORMATION
  Report Type: Report from Study
  Country: JP (occurrence: JP)
  Receive Date: 20200616
  Receipt Date: 20200911
  Transmission Date: 20201103
  Serious: Yes (Hospitalization)
  Sender: FDA-Public Use
  Company Number: JP-PFIZER INC-2020229867

PATIENT
  Age: 79 Year
  Sex: Female
  Weight: 62 kg

DRUGS (49)
  1. XELJANZ [Suspect]
     Active Substance: TOFACITINIB CITRATE
     Dosage: 5 MG, 2X/DAY
     Route: 048
     Dates: start: 20180807, end: 20180809
  2. XELJANZ [Suspect]
     Active Substance: TOFACITINIB CITRATE
     Dosage: 5 MG, 2X/DAY
     Route: 048
     Dates: start: 20190116, end: 20190514
  3. XELJANZ [Suspect]
     Active Substance: TOFACITINIB CITRATE
     Dosage: 5 MG, 2X/DAY
     Route: 048
     Dates: start: 20190528, end: 20190717
  4. PYDOXAL [Concomitant]
     Active Substance: PYRIDOXAL
     Route: 048
  5. XELJANZ [Suspect]
     Active Substance: TOFACITINIB CITRATE
     Indication: RHEUMATOID ARTHRITIS
     Dosage: 5 MG, 1X/DAY
     Route: 048
     Dates: start: 20170404, end: 20170514
  6. PREDNISOLONE. [Suspect]
     Active Substance: PREDNISOLONE
     Dosage: 6 MG, DAILY
     Route: 048
     Dates: start: 20170505, end: 20170803
  7. PREDNISOLONE. [Suspect]
     Active Substance: PREDNISOLONE
     Dosage: 15 MG, DAILY
     Route: 048
     Dates: start: 20180726, end: 20180807
  8. METHOTREXATE SODIUM. [Concomitant]
     Active Substance: METHOTREXATE SODIUM
     Dosage: 8 MG, WEEKLY
     Dates: start: 20180803, end: 20181228
  9. METHOTREXATE SODIUM. [Concomitant]
     Active Substance: METHOTREXATE SODIUM
     Dosage: 8 MG, WEEKLY
     Dates: start: 20190117, end: 20190305
  10. LAXOBERON [Concomitant]
     Active Substance: SODIUM PICOSULFATE
     Route: 048
  11. CLARITHROMYCIN. [Concomitant]
     Active Substance: CLARITHROMYCIN
     Dosage: UNK
     Route: 048
     Dates: start: 20170419
  12. PREDNISOLONE. [Suspect]
     Active Substance: PREDNISOLONE
     Dosage: 4 MG, DAILY
     Route: 048
     Dates: start: 20180522, end: 20180725
  13. PREDNISOLONE. [Suspect]
     Active Substance: PREDNISOLONE
     Dosage: 30 MG, DAILY
     Route: 048
     Dates: start: 20190326, end: 20190411
  14. PREDNISOLONE. [Suspect]
     Active Substance: PREDNISOLONE
     Dosage: 19.5 MG, DAILY
     Route: 048
     Dates: start: 20190425, end: 20190514
  15. THYRADIN?S [Concomitant]
     Active Substance: LEVOTHYROXINE
     Route: 048
  16. ALOSENN [SENNOSIDE A+B] [Concomitant]
     Route: 048
  17. DENOTAS [Concomitant]
     Active Substance: CALCIUM CARBONATE\CHOLECALCIFEROL\MAGNESIUM CARBONATE
     Dosage: UNK
     Route: 048
     Dates: start: 20190620
  18. PREDNISOLONE. [Suspect]
     Active Substance: PREDNISOLONE
     Dosage: 4 MG, DAILY
     Route: 048
     Dates: start: 20170505, end: 20170514
  19. BONALON [Concomitant]
     Active Substance: ALENDRONATE SODIUM
     Route: 048
  20. ONEALFA [Concomitant]
     Active Substance: ALFACALCIDOL
     Route: 048
  21. FOLIAMIN [Concomitant]
     Active Substance: FOLIC ACID
     Route: 048
  22. ISCOTIN [Concomitant]
     Active Substance: ISONIAZID
     Route: 048
  23. ARICEPT [Concomitant]
     Active Substance: DONEPEZIL HYDROCHLORIDE
     Dosage: UNK
     Route: 048
     Dates: start: 20170714
  24. PREDNISOLONE. [Suspect]
     Active Substance: PREDNISOLONE
     Dosage: 6 MG, DAILY
     Route: 048
     Dates: end: 20170504
  25. PREDNISOLONE. [Suspect]
     Active Substance: PREDNISOLONE
     Dosage: 5 MG, DAILY
     Route: 048
     Dates: start: 20170814, end: 20180521
  26. PREDNISOLONE. [Suspect]
     Active Substance: PREDNISOLONE
     Dosage: 25 MG, DAILY
     Route: 048
     Dates: start: 20190515, end: 20190516
  27. VOLTAREN [Concomitant]
     Active Substance: DICLOFENAC SODIUM
     Route: 048
  28. MEMARY [Concomitant]
     Active Substance: MEMANTINE HYDROCHLORIDE
     Dosage: UNK
     Route: 048
     Dates: start: 20170808
  29. ASPARA POTASSIUM [Concomitant]
     Active Substance: POTASSIUM ASPARTATE
     Dosage: UNK
     Route: 048
     Dates: start: 20190528
  30. XELJANZ [Suspect]
     Active Substance: TOFACITINIB CITRATE
     Dosage: 5 MG, 2X/DAY
     Route: 048
     Dates: start: 20190725, end: 20190912
  31. PREDNISOLONE. [Suspect]
     Active Substance: PREDNISOLONE
     Dosage: 22 MG, DAILY
     Route: 048
     Dates: start: 20190409, end: 20190424
  32. PREDNISOLONE. [Suspect]
     Active Substance: PREDNISOLONE
     Dosage: 17 MG, DAILY
     Route: 048
     Dates: start: 20190517, end: 20190619
  33. METHOTREXATE SODIUM. [Concomitant]
     Active Substance: METHOTREXATE SODIUM
     Dosage: 14 MG, WEEKLY
     Dates: end: 20180707
  34. REBAMIPIDE [Concomitant]
     Active Substance: REBAMIPIDE
     Route: 048
  35. BAKTAR [Concomitant]
     Active Substance: SULFAMETHOXAZOLE\TRIMETHOPRIM
     Route: 048
  36. XELJANZ [Suspect]
     Active Substance: TOFACITINIB CITRATE
     Dosage: 5 MG, 2X/DAY
     Route: 048
     Dates: start: 20180814, end: 20190104
  37. PREDNISOLONE. [Suspect]
     Active Substance: PREDNISOLONE
     Dosage: 12 MG, DAILY
     Route: 048
     Dates: start: 20180808, end: 20190325
  38. PREDNISOLONE. [Suspect]
     Active Substance: PREDNISOLONE
     Dosage: 25 MG, DAILY
     Route: 048
     Dates: start: 20190402, end: 20190408
  39. LANSOPRAZOLE. [Concomitant]
     Active Substance: LANSOPRAZOLE
     Route: 048
  40. BROTIZOLAM [Concomitant]
     Active Substance: BROTIZOLAM
     Route: 048
  41. LEBENIN [Concomitant]
     Active Substance: LACTOBACILLUS ACIDOPHILUS\STREPTOCOCCUS FAECAIS
     Route: 048
  42. CEFCAPENE PIVOXIL HYDROCHLORIDE [Concomitant]
     Active Substance: CEFCAPENE PIVOXIL HYDROCHLORIDE
     Dosage: UNK
     Route: 048
     Dates: start: 20170820
  43. EBRANTIL [URAPIDIL] [Concomitant]
     Active Substance: URAPIDIL
     Dosage: UNK
     Route: 048
     Dates: start: 20170524
  44. UBRETID [Concomitant]
     Active Substance: DISTIGMINE BROMIDE
     Dosage: UNK
     Route: 048
     Dates: start: 20170612
  45. BELSOMRA [Concomitant]
     Active Substance: SUVOREXANT
     Dosage: UNK
     Route: 048
     Dates: start: 20170913
  46. XELJANZ [Suspect]
     Active Substance: TOFACITINIB CITRATE
     Dosage: 5 MG, 2X/DAY
     Route: 048
     Dates: start: 20170515, end: 20180707
  47. PREDNISOLONE. [Suspect]
     Active Substance: PREDNISOLONE
     Dosage: 15 MG, DAILY
     Route: 048
     Dates: start: 20190620
  48. MAGNESIUM OXIDE. [Concomitant]
     Active Substance: MAGNESIUM OXIDE
     Route: 048
  49. ASPARA?CA [Concomitant]
     Active Substance: CALCIUM ASPARTATE
     Dosage: UNK
     Route: 048
     Dates: start: 20190424

REACTIONS (7)
  - Urinary tract infection [Recovered/Resolved]
  - Back pain [Recovering/Resolving]
  - Blood potassium decreased [Not Recovered/Not Resolved]
  - Restlessness [Recovered/Resolved]
  - Cellulitis [Recovered/Resolved]
  - Dehydration [Recovered/Resolved]
  - Insomnia [Not Recovered/Not Resolved]

NARRATIVE: CASE EVENT DATE: 20190514
